FAERS Safety Report 16318784 (Version 1)
Quarter: 2019Q2

REPORT INFORMATION
  Report Type: Spontaneous
  Country: CN (occurrence: CN)
  Receive Date: 20190516
  Receipt Date: 20190516
  Transmission Date: 20190711
  Serious: Yes (Other)
  Sender: FDA-Public Use
  Company Number: CN-BAYER-2019-092525

PATIENT
  Age: 28 Year
  Sex: Female

DRUGS (1)
  1. AVELOX [Suspect]
     Active Substance: MOXIFLOXACIN HYDROCHLORIDE
     Indication: TONSILLITIS BACTERIAL
     Dosage: 400 MG, QD
     Route: 041
     Dates: start: 20190408, end: 20190418

REACTIONS (18)
  - Pyrexia [Recovered/Resolved]
  - Chest discomfort [Recovered/Resolved]
  - Tremor [Recovering/Resolving]
  - Nausea [Recovered/Resolved]
  - Depressed mood [None]
  - Pruritus [None]
  - Temperature intolerance [Recovering/Resolving]
  - Product use in unapproved indication [None]
  - Asthma [Recovered/Resolved]
  - Asphyxia [Recovered/Resolved]
  - Pruritus generalised [None]
  - Headache [Recovered/Resolved]
  - Off label use [None]
  - Palpitations [Recovered/Resolved]
  - Hypoaesthesia [None]
  - Chills [Recovering/Resolving]
  - Vomiting [Recovered/Resolved]
  - Hyperhidrosis [None]

NARRATIVE: CASE EVENT DATE: 20190408
